FAERS Safety Report 13347575 (Version 1)
Quarter: 2017Q1

REPORT INFORMATION
  Report Type: Not Available
  Country: US (occurrence: US)
  Receive Date: 20170317
  Receipt Date: 20170317
  Transmission Date: 20170428
  Serious: No
  Sender: FDA-Public Use
  Company Number: US-CIPHERPHARMA-2016-US-009360

PATIENT
  Age: 37 Year
  Sex: Female

DRUGS (4)
  1. OMEPRAZOLE. [Concomitant]
     Active Substance: OMEPRAZOLE
  2. IRON SUPPLEMENT [Concomitant]
     Active Substance: IRON
  3. SINGULAIR [Concomitant]
     Active Substance: MONTELUKAST SODIUM
  4. SITAVIG [Suspect]
     Active Substance: ACYCLOVIR
     Dosage: 1 TABLET PLACED BUCCAL OVERNIGHT
     Route: 050
     Dates: start: 20161116, end: 20161117

REACTIONS (2)
  - Application site irritation [Not Recovered/Not Resolved]
  - Application site erythema [Not Recovered/Not Resolved]

NARRATIVE: CASE EVENT DATE: 20161117
